FAERS Safety Report 5103000-1 (Version None)
Quarter: 2006Q3

REPORT INFORMATION
  Report Type: 
  Country: None (occurrence: None)
  Receive Date: 20060908
  Receipt Date: 20060824
  Transmission Date: 20061208
  Serious: Yes (Disabling, Other)
  Sender: FDA-Public Use
  Company Number: 2005S1002635

PATIENT
  Age: 10 Year
  Sex: Male

DRUGS (16)
  1. MERCAPTAMINE BITARTRATE (MERCAPTAMINE BITARTRATE) [Suspect]
     Indication: CYSTINOSIS
     Dosage: SEE IMAGE
     Route: 048
     Dates: start: 20021001
  2. CYSTEAMINE (MERCAPTAMINE) [Suspect]
     Indication: CYSTINOSIS
     Dosage: SEE IMAGE
     Route: 048
     Dates: start: 20010301, end: 20020101
  3. CYSTEAMINE (MERCAPTAMINE) [Suspect]
     Indication: CYSTINOSIS
     Dosage: SEE IMAGE
     Route: 048
     Dates: start: 20020101, end: 20020601
  4. CYSTEAMINE (MERCAPTAMINE) [Suspect]
     Indication: CYSTINOSIS
     Dosage: SEE IMAGE
     Route: 048
     Dates: start: 20020601, end: 20020901
  5. L-THYROXIN (CON.) [Concomitant]
  6. HUMAN GROWTH HORMONE, RECOMBINANT (CON.) [Concomitant]
  7. ERYTHROPOIETIN (CON.) [Concomitant]
  8. ACE INHIBITOR NOS (CON.) [Concomitant]
  9. L-CARNITHINE (CON.) [Concomitant]
  10. CHOLECALCIFEROL (CON.) [Concomitant]
  11. FOLIC ACID (CON.) [Concomitant]
  12. PHOSPHATE (CON.) [Concomitant]
  13. SODIUM CHLORIDE (CON.) [Concomitant]
  14. SCHOLL SOLUTION (CON.) [Concomitant]
  15. HYDROCHLOROTHIAZIDE (CON.) [Concomitant]
  16. CYSTEAMINE (CON.) [Concomitant]

REACTIONS (34)
  - ABASIA [None]
  - ABNORMAL BEHAVIOUR [None]
  - AGITATION [None]
  - ANAEMIA [None]
  - ARTHRALGIA [None]
  - ASTHENIA [None]
  - ATTENTION DEFICIT/HYPERACTIVITY DISORDER [None]
  - BLOOD CALCIUM DECREASED [None]
  - BLOOD PARATHYROID HORMONE DECREASED [None]
  - BLOOD PHOSPHORUS DECREASED [None]
  - BODY HEIGHT BELOW NORMAL [None]
  - BONE DISORDER [None]
  - BONE PAIN [None]
  - COLLAGEN DISORDER [None]
  - CONFUSIONAL STATE [None]
  - CREATININE RENAL CLEARANCE DECREASED [None]
  - CRYING [None]
  - CYSTINOSIS [None]
  - ECCHYMOSIS [None]
  - HYPERNATRAEMIA [None]
  - KNEE DEFORMITY [None]
  - MUSCULAR WEAKNESS [None]
  - NUCLEAR MAGNETIC RESONANCE IMAGING BRAIN ABNORMAL [None]
  - PAIN IN EXTREMITY [None]
  - PERSONALITY DISORDER [None]
  - RICKETS [None]
  - SCAR [None]
  - SCOLIOSIS [None]
  - SKIN DISORDER [None]
  - SKIN LESION [None]
  - SKIN STRIAE [None]
  - SLEEP DISORDER [None]
  - TREMOR [None]
  - VOMITING [None]
